FAERS Safety Report 16328669 (Version 2)
Quarter: 2019Q2

REPORT INFORMATION
  Report Type: Spontaneous
  Country: US (occurrence: US)
  Receive Date: 20190518
  Receipt Date: 20190614
  Transmission Date: 20190711
  Serious: No
  Sender: FDA-Public Use
  Company Number: US-JNJFOC-20190501946

PATIENT
  Age: 57 Year
  Sex: Female
  Weight: 61.24 kg

DRUGS (2)
  1. FENTANYL. [Suspect]
     Active Substance: FENTANYL
     Indication: TERMINAL STATE
     Route: 062
     Dates: start: 2004
  2. DURAGESIC [Suspect]
     Active Substance: FENTANYL
     Indication: TERMINAL STATE
     Route: 062

REACTIONS (5)
  - Product dose omission [Unknown]
  - Underdose [Unknown]
  - Application site erosion [Unknown]
  - Dermatitis contact [Unknown]
  - Product complaint [Unknown]

NARRATIVE: CASE EVENT DATE: 20190327
